FAERS Safety Report 17506704 (Version 3)
Quarter: 2020Q2

REPORT INFORMATION
  Report Type: Spontaneous
  Country: CA (occurrence: CA)
  Receive Date: 20200306
  Receipt Date: 20200420
  Transmission Date: 20200713
  Serious: Yes (Hospitalization)
  Sender: FDA-Public Use
  Company Number: CA-009507513-2002CAN010070

PATIENT
  Age: 56 Year
  Sex: Female

DRUGS (3)
  1. ONDANSETRON [Concomitant]
     Active Substance: ONDANSETRON
     Indication: NAUSEA
     Dosage: DOSE 4 MILLIGRAM, TOTAL DAILY DOSE 8 MILLIGRAM
     Route: 048
  2. TEMOZOLOMIDE. [Concomitant]
     Active Substance: TEMOZOLOMIDE
     Indication: GLIOBLASTOMA
     Dosage: DOSE 100 MILLIGRAM, TOTAL DAILY DOSE 120 MILLIGRAM
     Route: 048
     Dates: start: 20200224, end: 20200228
  3. TEMODAL [Suspect]
     Active Substance: TEMOZOLOMIDE
     Indication: GLIOBLASTOMA
     Dosage: 20 MILLIGRAM, FREQUENCY: ^T^ DAILY X 5 DAYS
     Route: 048
     Dates: start: 20200224, end: 20200225

REACTIONS (3)
  - Adverse event [Recovered/Resolved]
  - Paraesthesia [Recovered/Resolved]
  - Head discomfort [Recovered/Resolved]

NARRATIVE: CASE EVENT DATE: 20200224
